FAERS Safety Report 9005059 (Version 5)
Quarter: 2013Q2

REPORT INFORMATION
  Report Type: Report from Study
  Country: US (occurrence: US)
  Receive Date: 20130109
  Receipt Date: 20130626
  Transmission Date: 20140414
  Serious: Yes (Hospitalization, Other)
  Sender: FDA-Public Use
  Company Number: US-BAYER-2013-000932

PATIENT
  Age: 66 Year
  Sex: Male
  Weight: 76.64 kg

DRUGS (10)
  1. STIVARGA [Suspect]
     Indication: COLON CANCER METASTATIC
     Dosage: 160 MG, QD
     Route: 048
     Dates: start: 20121216, end: 20130104
  2. BENTYL [Concomitant]
     Dosage: 10 MG, BID
     Route: 048
  3. CITALOPRAM [Concomitant]
     Route: 048
  4. IMODIUM A-D [Concomitant]
  5. MEDROL [Concomitant]
     Dosage: 1 DOSE PACK AS DIRECTED
     Route: 048
  6. METOPROLOL SUCCINATE [Concomitant]
     Dosage: 25 MG, 1 DAILY
     Route: 048
  7. PREVACID [Concomitant]
     Route: 048
  8. SENOKOT [Concomitant]
     Dosage: TAKE 1 QHS
     Route: 048
  9. SIMETHICONE [Concomitant]
     Route: 048
  10. ZOFRAN [Concomitant]
     Dosage: 8 MG, 1 ODT QH PRN
     Route: 060

REACTIONS (14)
  - Hepatotoxicity [Recovering/Resolving]
  - Septic shock [Recovering/Resolving]
  - Hypersomnia [Not Recovered/Not Resolved]
  - Groin abscess [None]
  - Pyrexia [None]
  - Chills [None]
  - Troponin increased [None]
  - Fatigue [Not Recovered/Not Resolved]
  - Dry mouth [Not Recovered/Not Resolved]
  - Decreased appetite [Not Recovered/Not Resolved]
  - Dysphonia [Not Recovered/Not Resolved]
  - Mental status changes [Not Recovered/Not Resolved]
  - Mucosal inflammation [None]
  - Skin toxicity [None]
